FAERS Safety Report 6308915-4 (Version None)
Quarter: 2009Q3

REPORT INFORMATION
  Report Type: 
  Country: None (occurrence: None)
  Receive Date: 20090813
  Receipt Date: 20090603
  Transmission Date: 20100115
  Serious: No
  Sender: FDA-Public Use
  Company Number: US-ALLERGAN-0907781US

PATIENT
  Age: 79 Year
  Sex: Male

DRUGS (3)
  1. COMBIGAN [Suspect]
     Indication: GLAUCOMA
     Dosage: 1 GTT, SINGLE
     Route: 047
     Dates: start: 20090507, end: 20090507
  2. DIAZEPAM [Concomitant]
     Indication: MUSCLE SPASMS
     Dosage: 5 MG, SINGLE
     Route: 048
     Dates: start: 20090507, end: 20090507
  3. CHLOR-TRIMETON [Concomitant]
     Indication: SEASONAL ALLERGY
     Dosage: UNK, SINGLE
     Dates: start: 20090507, end: 20090507

REACTIONS (2)
  - EYE PAIN [None]
  - VISUAL ACUITY REDUCED [None]
